FAERS Safety Report 13977730 (Version 1)
Quarter: 2017Q3

REPORT INFORMATION
  Report Type: Spontaneous
  Country: US (occurrence: US)
  Receive Date: 20170915
  Receipt Date: 20170915
  Transmission Date: 20171128
  Serious: Yes (Other)
  Sender: FDA-Public Use
  Company Number: None

PATIENT
  Sex: Female
  Weight: 47.25 kg

DRUGS (17)
  1. HYDROCODONE [Concomitant]
     Active Substance: HYDROCODONE
  2. PRIMIDONE. [Concomitant]
     Active Substance: PRIMIDONE
  3. VASCEPA [Concomitant]
     Active Substance: ICOSAPENT ETHYL
  4. DEXILANT [Concomitant]
     Active Substance: DEXLANSOPRAZOLE
  5. BENTYL [Concomitant]
     Active Substance: DICYCLOMINE HYDROCHLORIDE
  6. NEVRO SPINAL IMPLANT [Concomitant]
  7. VIVELLE [Concomitant]
     Active Substance: ESTRADIOL
  8. CYMBALTA [Concomitant]
     Active Substance: DULOXETINE HYDROCHLORIDE
  9. MILK OF MAGNESIA [Concomitant]
     Active Substance: MAGNESIUM HYDROXIDE
  10. BONIVA [Suspect]
     Active Substance: IBANDRONATE SODIUM
     Indication: OSTEOPOROSIS
     Dosage: QUANTITY:1 TABLET(S);OTHER FREQUENCY:1X MONTHLY;?ORAL
     Route: 048
     Dates: start: 20170601, end: 20170831
  11. GABAPENTIN. [Concomitant]
     Active Substance: GABAPENTIN
  12. CENTRUM [Concomitant]
     Active Substance: VITAMINS
  13. CRESTOR [Concomitant]
     Active Substance: ROSUVASTATIN CALCIUM
  14. ZOFRAN [Concomitant]
     Active Substance: ONDANSETRON HYDROCHLORIDE
  15. VITAMIN D [Concomitant]
     Active Substance: CHOLECALCIFEROL
  16. FENTYL [Concomitant]
     Active Substance: FENTANYL
  17. PROGESTERONE. [Concomitant]
     Active Substance: PROGESTERONE

REACTIONS (20)
  - Bladder spasm [None]
  - Muscle spasms [None]
  - Asthenia [None]
  - Nausea [None]
  - Urinary tract infection [None]
  - Tongue disorder [None]
  - Dysphagia [None]
  - Pain [None]
  - Oropharyngeal pain [None]
  - Hypophagia [None]
  - Influenza like illness [None]
  - Bladder pain [None]
  - Aphonia [None]
  - Back pain [None]
  - Headache [None]
  - Sleep disorder [None]
  - Chills [None]
  - Arthralgia [None]
  - Abdominal pain upper [None]
  - Fatigue [None]

NARRATIVE: CASE EVENT DATE: 20170831
